FAERS Safety Report 22035173 (Version 1)
Quarter: 2023Q1

REPORT INFORMATION
  Report Type: Spontaneous
  Country: US (occurrence: US)
  Receive Date: 20230224
  Receipt Date: 20230224
  Transmission Date: 20230417
  Serious: Yes (Other)
  Sender: FDA-Public Use
  Company Number: US-TEVA-2023-US-2858431

PATIENT
  Age: 69 Year
  Sex: Female

DRUGS (24)
  1. QVAR [Suspect]
     Active Substance: BECLOMETHASONE DIPROPIONATE
     Indication: Product used for unknown indication
     Route: 065
  2. JAKAFI [Suspect]
     Active Substance: RUXOLITINIB
     Indication: Myelofibrosis
     Dosage: 30 MILLIGRAM DAILY;
     Route: 048
     Dates: start: 20161216
  3. JAKAFI [Suspect]
     Active Substance: RUXOLITINIB
     Indication: Polycythaemia vera
     Dosage: 10 MILLIGRAM DAILY;
     Route: 048
     Dates: start: 20161219
  4. JAKAFI [Suspect]
     Active Substance: RUXOLITINIB
     Dosage: 30 MILLIGRAM DAILY;
     Route: 048
     Dates: start: 20161219
  5. JAKAFI [Suspect]
     Active Substance: RUXOLITINIB
     Dosage: 15 MILLIGRAM DAILY; 15 MILLIGRAM
     Route: 048
     Dates: start: 20170224
  6. JAKAFI [Suspect]
     Active Substance: RUXOLITINIB
     Dosage: 30 MILLIGRAM DAILY;
     Route: 048
     Dates: start: 201703
  7. JAKAFI [Suspect]
     Active Substance: RUXOLITINIB
     Dosage: 30 MILLIGRAM DAILY;
     Route: 048
     Dates: start: 201703
  8. JAKAFI [Suspect]
     Active Substance: RUXOLITINIB
     Dosage: 30 MILLIGRAM DAILY;
     Route: 048
  9. JAKAFI [Suspect]
     Active Substance: RUXOLITINIB
     Dosage: 10 MILLIGRAM DAILY;
     Route: 048
     Dates: start: 20161219
  10. JAKAFI [Suspect]
     Active Substance: RUXOLITINIB
     Dosage: 10 MILLIGRAM DAILY;
     Route: 048
     Dates: start: 201901
  11. JAKAFI [Suspect]
     Active Substance: RUXOLITINIB
     Dosage: 20 MILLIGRAM DAILY; ONGOING
     Route: 048
     Dates: start: 201903
  12. JAKAFI [Suspect]
     Active Substance: RUXOLITINIB
     Dosage: 10 MILLIGRAM DAILY; ONGOING
     Route: 048
     Dates: start: 201908
  13. VAGIFEM [Concomitant]
     Active Substance: ESTRADIOL
     Indication: Product used for unknown indication
     Route: 065
  14. ALLOPURINOL [Concomitant]
     Active Substance: ALLOPURINOL
     Indication: Product used for unknown indication
     Route: 065
  15. SYNTHROID [Concomitant]
     Active Substance: LEVOTHYROXINE SODIUM
     Indication: Product used for unknown indication
     Route: 065
  16. ESTRACE [Concomitant]
     Active Substance: ESTRADIOL
     Indication: Product used for unknown indication
     Route: 065
  17. ASPIRIN [Concomitant]
     Active Substance: ASPIRIN
     Indication: Product used for unknown indication
     Route: 065
  18. FISH OIL [Concomitant]
     Active Substance: FISH OIL
     Indication: Product used for unknown indication
     Route: 065
  19. VITAMIN D [Concomitant]
     Active Substance: VITAMIN D NOS
     Indication: Product used for unknown indication
     Route: 065
  20. PROBIOTICS NOS [Concomitant]
     Active Substance: PROBIOTICS NOS
     Indication: Product used for unknown indication
     Route: 065
  21. ATARAX [Concomitant]
     Active Substance: HYDROXYZINE HYDROCHLORIDE
     Indication: Product used for unknown indication
     Route: 065
  22. BENADRYL [Concomitant]
     Active Substance: DIPHENHYDRAMINE HYDROCHLORIDE
     Indication: Product used for unknown indication
     Route: 065
  23. RESTASIS [Concomitant]
     Active Substance: CYCLOSPORINE
     Indication: Product used for unknown indication
     Route: 065
  24. COZAAR [Concomitant]
     Active Substance: LOSARTAN POTASSIUM
     Indication: Product used for unknown indication
     Route: 065

REACTIONS (42)
  - Platelet count increased [Unknown]
  - Skin cancer [Unknown]
  - Aortic wall hypertrophy [Unknown]
  - Palpitations [Not Recovered/Not Resolved]
  - Influenza like illness [Unknown]
  - Feeling abnormal [Unknown]
  - White blood cell count increased [Unknown]
  - Chest pain [Unknown]
  - Malaise [Not Recovered/Not Resolved]
  - Pallor [Not Recovered/Not Resolved]
  - Infection [Unknown]
  - Flatulence [Not Recovered/Not Resolved]
  - Sinusitis [Unknown]
  - Feeling hot [Unknown]
  - Fall [Unknown]
  - Gait disturbance [Unknown]
  - Skin disorder [Unknown]
  - Blood lactate dehydrogenase increased [Unknown]
  - Medial tibial stress syndrome [Unknown]
  - Bone pain [Unknown]
  - Dyspepsia [Unknown]
  - Sleep disorder [Unknown]
  - Hyperchlorhydria [Unknown]
  - Heart rate increased [Unknown]
  - Oral candidiasis [Unknown]
  - Migraine with aura [Not Recovered/Not Resolved]
  - Incorrect dose administered [Unknown]
  - Petechiae [Unknown]
  - Fatigue [Unknown]
  - Blood pressure increased [Unknown]
  - Abdominal pain upper [Unknown]
  - Abdominal discomfort [Unknown]
  - Contusion [Unknown]
  - Dyspnoea [Unknown]
  - Pruritus [Unknown]
  - Headache [Not Recovered/Not Resolved]
  - Constipation [Unknown]
  - Blood cholesterol increased [Unknown]
  - Muscle spasms [Unknown]
  - Haematoma [Unknown]
  - Weight increased [Unknown]
  - Increased tendency to bruise [Unknown]

NARRATIVE: CASE EVENT DATE: 20161201
